FAERS Safety Report 6536832-3 (Version None)
Quarter: 2010Q1

REPORT INFORMATION
  Report Type: 
  Country: None (occurrence: None)
  Receive Date: 20100107
  Receipt Date: 20100104
  Transmission Date: 20100710
  Serious: No
  Sender: FDA-Public Use
  Company Number: TPA2009A03817

PATIENT
  Age: 80 Year
  Sex: Male
  Weight: 79.3795 kg

DRUGS (12)
  1. ULORIC [Suspect]
     Indication: GOUT
     Dosage: 40 MG, 1 IN 1 D, PER ORAL
     Route: 048
     Dates: start: 20090101
  2. COMBIVENT [Concomitant]
  3. OXYGEN (OXYGEN) [Concomitant]
  4. COLCHICINE (COLCHICINE) [Concomitant]
  5. IPRATROPLUM BROMIDE NASAL SOLUTION (IPRATROPIUM BROMIDE) [Concomitant]
  6. ADVAIR DISKUS 100/50 [Concomitant]
  7. LASIX [Concomitant]
  8. PREDNISONE [Concomitant]
  9. WARFARIN SODIUM [Concomitant]
  10. AMBIEN [Concomitant]
  11. ALPRAZOLAM [Concomitant]
  12. OXYCODONE HCL [Concomitant]

REACTIONS (7)
  - BLOOD POTASSIUM DECREASED [None]
  - BREAST SWELLING [None]
  - GOUT [None]
  - PAINFUL DEFAECATION [None]
  - PNEUMONIA [None]
  - RED BLOOD CELL COUNT DECREASED [None]
  - WHITE BLOOD CELL COUNT INCREASED [None]
